FAERS Safety Report 8825735 (Version 1)
Quarter: 2012Q4

REPORT INFORMATION
  Report Type: 
  Country: SV (occurrence: SV)
  Receive Date: 20121004
  Receipt Date: 20121004
  Transmission Date: 20130627
  Serious: Yes (Death)
  Sender: FDA-Public Use
  Company Number: SV-NOVOPROD-360746

PATIENT
  Sex: Female

DRUGS (1)
  1. LEVEMIR FLEXPEN [Suspect]
     Indication: PRODUCT USED FOR UNKNOWN INDICATION
     Dosage: 20 IU, qd
     Route: 065

REACTIONS (1)
  - Lung cancer metastatic [Fatal]
